FAERS Safety Report 22107490 (Version 3)
Quarter: 2023Q2

REPORT INFORMATION
  Report Type: Report from Study
  Country: JP (occurrence: JP)
  Receive Date: 20230317
  Receipt Date: 20230511
  Transmission Date: 20230722
  Serious: Yes (Hospitalization, Other)
  Sender: FDA-Public Use
  Company Number: JP-NOVOPROD-927794

PATIENT
  Age: 36 Year
  Sex: Male
  Weight: 56 kg

DRUGS (2)
  1. COAGULATION FACTOR IX (RECOMBINANT), GLYCOPEGYLATED [Suspect]
     Active Substance: COAGULATION FACTOR IX (RECOMBINANT), GLYCOPEGYLATED
     Indication: Factor IX deficiency
     Dosage: 40IU/KG,2000IU
     Route: 042
     Dates: start: 20210910, end: 20220429
  2. COAGULATION FACTOR IX (RECOMBINANT), GLYCOPEGYLATED [Suspect]
     Active Substance: COAGULATION FACTOR IX (RECOMBINANT), GLYCOPEGYLATED
     Indication: Haemarthrosis
     Dosage: 2000IU
     Route: 042
     Dates: start: 20220506, end: 20220516

REACTIONS (3)
  - Haemarthrosis [Recovered/Resolved]
  - Condition aggravated [Recovered/Resolved]
  - Therapeutic response decreased [Recovering/Resolving]

NARRATIVE: CASE EVENT DATE: 20220506
